FAERS Safety Report 5454248-8 (Version None)
Quarter: 2007Q3

REPORT INFORMATION
  Report Type: 
  Country: None (occurrence: None)
  Receive Date: 20070801
  Receipt Date: 20070405
  Transmission Date: 20080115
  Serious: Yes (Hospitalization)
  Sender: FDA-Public Use
  Company Number: 2007-US-000203

PATIENT
  Age: 15 Year
  Sex: Male
  Weight: 38 kg

DRUGS (4)
  1. INCRELEX [Suspect]
     Indication: BODY HEIGHT BELOW NORMAL
     Dosage: 15 UT, QD, SUBCUTANEOUS   30 UT, QD, SUBCUTANEOUS   29 UT, QD, SUBCUTANEOUS
     Route: 058
     Dates: start: 20070110, end: 20070226
  2. INCRELEX [Suspect]
     Indication: BODY HEIGHT BELOW NORMAL
     Dosage: 15 UT, QD, SUBCUTANEOUS   30 UT, QD, SUBCUTANEOUS   29 UT, QD, SUBCUTANEOUS
     Route: 058
     Dates: start: 20070227, end: 20070312
  3. INCRELEX [Suspect]
     Indication: BODY HEIGHT BELOW NORMAL
     Dosage: 15 UT, QD, SUBCUTANEOUS   30 UT, QD, SUBCUTANEOUS   29 UT, QD, SUBCUTANEOUS
     Route: 058
     Dates: start: 20070313, end: 20070402
  4. FEMARA [Concomitant]

REACTIONS (1)
  - DEPRESSION [None]
